FAERS Safety Report 11934979 (Version 2)
Quarter: 2016Q1

REPORT INFORMATION
  Report Type: Spontaneous
  Country: US (occurrence: US)
  Receive Date: 20160121
  Receipt Date: 20160301
  Transmission Date: 20160526
  Serious: No
  Sender: FDA-Public Use
  Company Number: US-JNJFOC-20160101414

PATIENT
  Age: 58 Year
  Sex: Female
  Weight: 70.76 kg

DRUGS (1)
  1. SIMPONI [Suspect]
     Active Substance: GOLIMUMAB
     Indication: RHEUMATOID ARTHRITIS
     Route: 058

REACTIONS (6)
  - Inappropriate schedule of drug administration [Unknown]
  - Blood count abnormal [Not Recovered/Not Resolved]
  - Weight decreased [Unknown]
  - Accidental exposure to product [Unknown]
  - Device malfunction [Unknown]
  - Application site haemorrhage [Recovered/Resolved]

NARRATIVE: CASE EVENT DATE: 20151102
